FAERS Safety Report 5581707-X (Version None)
Quarter: 2008Q1

REPORT INFORMATION
  Report Type: 
  Country: None (occurrence: None)
  Receive Date: 20080104
  Receipt Date: 20071226
  Transmission Date: 20080703
  Serious: Yes (Other)
  Sender: FDA-Public Use
  Company Number: JP-JNJFOC-20071200182

PATIENT
  Sex: Female
  Weight: 43.7 kg

DRUGS (9)
  1. ITRIZOLE [Suspect]
     Indication: BRONCHOPULMONARY ASPERGILLOSIS
     Route: 048
  2. TULOBUTEROL HYDROCHLORIDE [Concomitant]
     Indication: ASTHMA
     Route: 062
  3. CODEINE PHOSPHATE [Concomitant]
     Route: 065
  4. DEXTROMETHORPHAN HYDROBROMIDE [Concomitant]
     Indication: BRONCHOPULMONARY ASPERGILLOSIS
     Route: 048
  5. ADONA [Concomitant]
     Indication: BRONCHOPULMONARY ASPERGILLOSIS
     Route: 048
  6. GLYSENNID [Concomitant]
     Indication: CONSTIPATION
     Route: 048
  7. SINGULAIR [Concomitant]
     Indication: ASTHMA
     Route: 048
  8. MAGMITT [Concomitant]
     Indication: CONSTIPATION
     Route: 048
  9. FLUTIDE DISKUS [Concomitant]
     Indication: ASTHMA
     Route: 055

REACTIONS (2)
  - DEAFNESS [None]
  - EUSTACHIAN TUBE OBSTRUCTION [None]
